FAERS Safety Report 9684147 (Version 1)
Quarter: 2013Q4

REPORT INFORMATION
  Report Type: Spontaneous
  Country: US (occurrence: None)
  Receive Date: 20131111
  Receipt Date: 20131111
  Transmission Date: 20140711
  Serious: No
  Sender: FDA-Public Use
  Company Number: None

PATIENT
  Age: 44 Year
  Sex: Female
  Weight: 64.41 kg

DRUGS (1)
  1. MIRVASO 5MG GALDERMA [Suspect]
     Indication: ROSACEA
     Dosage: 5 PEA SIZED AMOUNTS TO FACE ONCE DAILY APPLIED TO A SURFACE, USUALLY THE SKIN
     Route: 061
     Dates: start: 20131005, end: 20131008

REACTIONS (4)
  - Flushing [None]
  - Rebound effect [None]
  - Acne cystic [None]
  - Capillary disorder [None]
